FAERS Safety Report 6088976-0 (Version None)
Quarter: 2009Q1

REPORT INFORMATION
  Report Type: 
  Country: None (occurrence: None)
  Receive Date: 20090219
  Receipt Date: 20090206
  Transmission Date: 20090719
  Serious: Yes (Hospitalization)
  Sender: FDA-Public Use
  Company Number: 09P-130-0500776-00

PATIENT
  Age: 11 Month
  Sex: Male

DRUGS (4)
  1. SYNAGIS [Suspect]
     Indication: HEART DISEASE CONGENITAL
     Dosage: SEE IMAGE
     Route: 030
     Dates: start: 20081001, end: 20081001
  2. SYNAGIS [Suspect]
     Indication: HEART DISEASE CONGENITAL
     Dosage: SEE IMAGE
     Route: 030
     Dates: start: 20081101, end: 20081101
  3. SYNAGIS [Suspect]
     Indication: HEART DISEASE CONGENITAL
     Dosage: SEE IMAGE
     Route: 030
     Dates: start: 20081201, end: 20081201
  4. SYNAGIS [Suspect]
     Indication: HEART DISEASE CONGENITAL
     Dosage: SEE IMAGE
     Route: 030
     Dates: start: 20090101

REACTIONS (3)
  - BRONCHIOLITIS [None]
  - DRUG INEFFECTIVE [None]
  - RESPIRATORY SYNCYTIAL VIRUS TEST POSITIVE [None]
